FAERS Safety Report 5301566-X (Version None)
Quarter: 2007Q2

REPORT INFORMATION
  Report Type: 
  Country: None (occurrence: None)
  Receive Date: 20070412
  Receipt Date: 20070330
  Transmission Date: 20071010
  Serious: Yes (Other)
  Sender: FDA-Public Use
  Company Number: 2007RR-06677

PATIENT
  Age: 68 Year
  Sex: Female
  Weight: 75 kg

DRUGS (7)
  1. SIMVASTATIN [Suspect]
     Indication: BLOOD CHOLESTEROL INCREASED
     Dosage: ORAL
     Route: 048
     Dates: start: 20061220, end: 20070314
  2. AMLODIPINE MALEATE (AMLODIPINE) [Concomitant]
  3. BUMETANIDE [Concomitant]
  4. PERINDOPRIL ERBUMINE [Concomitant]
  5. FLUVOXAMINE MALEATE [Concomitant]
  6. LEVOTHYROXINE SODIUM [Concomitant]
  7. TEGRETOL [Concomitant]

REACTIONS (5)
  - ALOPECIA [None]
  - ASTHENIA [None]
  - FORMICATION [None]
  - MUSCULAR WEAKNESS [None]
  - PARAESTHESIA [None]
